FAERS Safety Report 8091035-9 (Version None)
Quarter: 2012Q1

REPORT INFORMATION
  Report Type: 
  Country: None (occurrence: None)
  Receive Date: 20120128
  Receipt Date: 20110730
  Transmission Date: 20120608
  Serious: No
  Sender: FDA-Public Use
  Company Number: US-ABBOTT-11P-163-0843030-00

PATIENT
  Age: 54 Year
  Sex: Female

DRUGS (10)
  1. LAMICTAL [Concomitant]
     Indication: DEPRESSION
     Dosage: 150 MG
  2. WELLBUTRIN [Concomitant]
     Indication: BIPOLAR DISORDER
  3. METHOTREXATE [Concomitant]
     Indication: PRODUCT USED FOR UNKNOWN INDICATION
     Dosage: 6 PILLS WEEKLY
  4. LAMICTAL [Concomitant]
     Indication: BIPOLAR DISORDER
  5. WELLBUTRIN [Concomitant]
     Indication: DEPRESSION
  6. EFFEXOR [Concomitant]
     Indication: BIPOLAR DISORDER
  7. FOLIC ACID [Concomitant]
     Indication: PRODUCT USED FOR UNKNOWN INDICATION
  8. HUMIRA [Suspect]
     Indication: RHEUMATOID ARTHRITIS
     Dates: start: 20110718
  9. PREDNISONE TAB [Concomitant]
     Indication: PRODUCT USED FOR UNKNOWN INDICATION
  10. EFFEXOR [Concomitant]
     Indication: DEPRESSION
     Dosage: 1/2 TAB

REACTIONS (2)
  - CONDITION AGGRAVATED [None]
  - PAIN [None]
